FAERS Safety Report 13783137 (Version 2)
Quarter: 2017Q3

REPORT INFORMATION
  Report Type: Spontaneous
  Country: US (occurrence: US)
  Receive Date: 20170724
  Receipt Date: 20170807
  Transmission Date: 20171127
  Serious: Yes (Other)
  Sender: FDA-Public Use
  Company Number: US-GLAXOSMITHKLINE-US2017112770

PATIENT
  Sex: Male

DRUGS (2)
  1. EXCEDRIN [Suspect]
     Active Substance: ACETAMINOPHEN\ASPIRIN\CAFFEINE
     Indication: PAIN
     Dosage: 8 DF, UNK
  2. EXCEDRIN MIGRAINE [Suspect]
     Active Substance: ACETAMINOPHEN\ASPIRIN\CAFFEINE
     Indication: HEADACHE
     Dosage: UNK

REACTIONS (7)
  - Intentional product use issue [Unknown]
  - Extra dose administered [Unknown]
  - Cerebral haemorrhage [Unknown]
  - Incorrect drug administration duration [Unknown]
  - Dementia Alzheimer^s type [Unknown]
  - Gastric haemorrhage [Recovered/Resolved]
  - Drug ineffective for unapproved indication [Unknown]
